FAERS Safety Report 21641055 (Version 3)
Quarter: 2022Q4

REPORT INFORMATION
  Report Type: Spontaneous
  Country: JP (occurrence: JP)
  Receive Date: 20221125
  Receipt Date: 20221222
  Transmission Date: 20230113
  Serious: Yes (Hospitalization, Other)
  Sender: FDA-Public Use
  Company Number: JP-002147023-NVSJ2022JP099239

PATIENT
  Age: 44 Year
  Sex: Female
  Weight: 52 kg

DRUGS (4)
  1. KESIMPTA [Suspect]
     Active Substance: OFATUMUMAB
     Indication: Relapsing-remitting multiple sclerosis
     Dosage: 20 MG
     Route: 058
     Dates: start: 20210908
  2. KESIMPTA [Suspect]
     Active Substance: OFATUMUMAB
     Dosage: 20 MG
     Route: 058
  3. KESIMPTA [Suspect]
     Active Substance: OFATUMUMAB
     Dosage: 20 MG, Q4W, THE 16TH DOSE
     Route: 058
     Dates: start: 20220921
  4. KESIMPTA [Suspect]
     Active Substance: OFATUMUMAB
     Dosage: 20 MG, Q4W, THE 17TH DOSE
     Route: 058
     Dates: start: 20221019

REACTIONS (13)
  - Relapsing-remitting multiple sclerosis [Recovered/Resolved]
  - Nystagmus [Recovering/Resolving]
  - Gait disturbance [Recovering/Resolving]
  - Dysphagia [Recovered/Resolved]
  - Hypoacusis [Recovering/Resolving]
  - Horner^s syndrome [Recovered/Resolved]
  - Ophthalmoplegia [Recovering/Resolving]
  - Blepharophimosis [Not Recovered/Not Resolved]
  - Coordination abnormal [Recovering/Resolving]
  - Facial paralysis [Recovered/Resolved]
  - Cerebellar ataxia [Recovered/Resolved]
  - Lateral medullary syndrome [Recovered/Resolved]
  - Nausea [Recovering/Resolving]

NARRATIVE: CASE EVENT DATE: 20221006
